FAERS Safety Report 4406653-6 (Version None)
Quarter: 2004Q3

REPORT INFORMATION
  Report Type: 
  Country: None (occurrence: None)
  Receive Date: 20040720
  Receipt Date: 20040706
  Transmission Date: 20050211
  Serious: Yes (Death)
  Sender: FDA-Public Use
  Company Number: 2004-BP-02737NB

PATIENT
  Age: 81 Year
  Sex: Male

DRUGS (4)
  1. MEXITIL [Suspect]
     Indication: TACHYARRHYTHMIA
     Dosage: 300 MG PO
     Route: 048
     Dates: end: 20040328
  2. ADALAT (NIFEDIPINE) (KA) [Concomitant]
  3. EUGLUCON (TA) [Concomitant]
  4. GOSHA-JINKI-GAN (GR) [Concomitant]

REACTIONS (1)
  - STEVENS-JOHNSON SYNDROME [None]
